FAERS Safety Report 4728125-1 (Version None)
Quarter: 2005Q3

REPORT INFORMATION
  Report Type: 
  Country: None (occurrence: None)
  Receive Date: 20050728
  Receipt Date: 20050728
  Transmission Date: 20060218
  Serious: Yes (Other)
  Sender: FDA-Public Use
  Company Number: None

PATIENT
  Age: 57 Year
  Sex: Female
  Weight: 66.2252 kg

DRUGS (1)
  1. GADALINIUM [Suspect]
     Indication: SCAN WITH CONTRAST
     Dosage: ONCE INTRA-ART
     Route: 013

REACTIONS (7)
  - BACK PAIN [None]
  - CHEST PAIN [None]
  - DIZZINESS [None]
  - EMOTIONAL DISTRESS [None]
  - ERYTHEMA [None]
  - HYPERHIDROSIS [None]
  - SENSORY DISTURBANCE [None]
